FAERS Safety Report 13102142 (Version 1)
Quarter: 2017Q1

REPORT INFORMATION
  Report Type: Spontaneous
  Country: US (occurrence: US)
  Receive Date: 20170110
  Receipt Date: 20170110
  Transmission Date: 20170428
  Serious: Yes (Death)
  Sender: FDA-Public Use
  Company Number: US-MEDA-2017010005

PATIENT
  Age: 53 Year
  Sex: Male

DRUGS (5)
  1. SALICYLATE [Suspect]
     Active Substance: SALICYLIC ACID
  2. PREGABALIN. [Suspect]
     Active Substance: PREGABALIN
  3. ACETAMINOPHEN W/OXYCODONE [Suspect]
     Active Substance: ACETAMINOPHEN\OXYCODONE HYDROCHLORIDE
  4. CARISOPRODOL. [Suspect]
     Active Substance: CARISOPRODOL
  5. MORPHINE [Suspect]
     Active Substance: MORPHINE

REACTIONS (1)
  - Completed suicide [Fatal]

NARRATIVE: CASE EVENT DATE: 2015
